FAERS Safety Report 10620429 (Version 3)
Quarter: 2015Q1

REPORT INFORMATION
  Report Type: Spontaneous
  Country: IT (occurrence: IT)
  Receive Date: 20141202
  Receipt Date: 20150303
  Transmission Date: 20150720
  Serious: Yes (Death, Hospitalization, Other)
  Sender: FDA-Public Use
  Company Number: IT-ELI_LILLY_AND_COMPANY-IT201411011057

PATIENT
  Age: 70 Year
  Sex: Male
  Weight: 66 kg

DRUGS (11)
  1. ABRAXANE [Suspect]
     Active Substance: PACLITAXEL
     Indication: PANCREATIC CARCINOMA METASTATIC
     Dosage: 170 MG, CYCLICAL DAY 1,8,15 EVERY 21 DAYS
     Route: 042
     Dates: start: 20141001, end: 20141001
  2. DECADRON [Concomitant]
     Active Substance: DEXAMETHASONE
     Indication: PRODUCT USED FOR UNKNOWN INDICATION
     Dosage: 8 MG, UNKNOWN
     Route: 042
  3. TRIMETON [Concomitant]
     Active Substance: CHLORPHENIRAMINE MALEATE
     Indication: PRODUCT USED FOR UNKNOWN INDICATION
     Dosage: 10 MG, SINGLE
     Route: 042
  4. ZANTAC [Concomitant]
     Active Substance: RANITIDINE HYDROCHLORIDE
     Indication: PRODUCT USED FOR UNKNOWN INDICATION
     Dosage: 50 MG, UNKNOWN
     Route: 042
  5. DELTACORSOLONE                     /00016201/ [Concomitant]
     Indication: PRODUCT USED FOR UNKNOWN INDICATION
     Dosage: 25 MG, SINGLE
     Route: 065
  6. DELTACORSOLONE                     /00016201/ [Concomitant]
     Dosage: 25 MG, BID
     Route: 065
  7. ZOFRAN                             /00955302/ [Concomitant]
     Dosage: 4 MG, UNKNOWN
     Route: 042
     Dates: start: 20141009
  8. GEMZAR [Suspect]
     Active Substance: GEMCITABINE HYDROCHLORIDE
     Dosage: 1740 MG IN TOTAL, DAY 1,8,15 EVERY 21 DAYS
     Route: 042
     Dates: start: 20140101, end: 20140101
  9. ZOFRAN                             /00955302/ [Concomitant]
     Indication: PRODUCT USED FOR UNKNOWN INDICATION
     Dosage: UNK, UNKNOWN
     Route: 042
  10. GEMZAR [Suspect]
     Active Substance: GEMCITABINE HYDROCHLORIDE
     Dosage: 1740 MG IN TOTAL, DAY 1,8,15 EVERY 21 DAYS
     Route: 042
     Dates: start: 20141001, end: 20141001
  11. ABRAXANE [Suspect]
     Active Substance: PACLITAXEL
     Dosage: 125 MG PER SQUARE METER OF BODY SURFACE AREA, CYCLICAL,
     Route: 042

REACTIONS (9)
  - Neutropenia [Fatal]
  - Diarrhoea [Fatal]
  - Pancytopenia [Unknown]
  - Off label use [Unknown]
  - Discomfort [Unknown]
  - Multi-organ failure [Fatal]
  - Hypotension [Unknown]
  - Cardiogenic shock [Fatal]
  - Acute kidney injury [Unknown]

NARRATIVE: CASE EVENT DATE: 20141001
